FAERS Safety Report 4396533-7 (Version None)
Quarter: 2004Q2

REPORT INFORMATION
  Report Type: 
  Country: None (occurrence: None)
  Receive Date: 20040621
  Receipt Date: 20031020
  Transmission Date: 20050107
  Serious: Yes (Other)
  Sender: FDA-Public Use
  Company Number: USA-2003-0010370

PATIENT
  Age: 63 Year
  Sex: Male
  Weight: 88.4 kg

DRUGS (5)
  1. OXYCONTIN [Suspect]
     Indication: PAIN
     Dosage: 40 MG, BID, ORAL
     Route: 048
     Dates: start: 20000101
  2. SOMA [Concomitant]
  3. DIVALPROEX SODIUM [Concomitant]
  4. SERTRALINE HCL [Concomitant]
  5. RISPERDAL [Concomitant]

REACTIONS (7)
  - ACCIDENT [None]
  - DIZZINESS [None]
  - DRUG DEPENDENCE [None]
  - DRUG TOLERANCE INCREASED [None]
  - EUPHORIC MOOD [None]
  - FATIGUE [None]
  - OVERDOSE [None]
